FAERS Safety Report 20844558 (Version 3)
Quarter: 2022Q2

REPORT INFORMATION
  Report Type: Spontaneous
  Country: US (occurrence: US)
  Receive Date: 20220518
  Receipt Date: 20220628
  Transmission Date: 20220721
  Serious: No
  Sender: FDA-Public Use
  Company Number: US-PFIZER INC-202200700290

PATIENT
  Age: 45 Year
  Sex: Female
  Weight: 52.16 kg

DRUGS (1)
  1. PAXLOVID [Suspect]
     Active Substance: NIRMATRELVIR\RITONAVIR
     Indication: COVID-19 treatment
     Dosage: SHE TOOK THE ONE DOSE AND THEN STOPPED IT
     Route: 048
     Dates: start: 202205

REACTIONS (3)
  - Dysgeusia [Recovering/Resolving]
  - Vomiting [Unknown]
  - Dizziness [Recovering/Resolving]

NARRATIVE: CASE EVENT DATE: 20220501
